FAERS Safety Report 6834671-7 (Version None)
Quarter: 2010Q3

REPORT INFORMATION
  Report Type: 
  Country: None (occurrence: None)
  Receive Date: 20100712
  Receipt Date: 20070420
  Transmission Date: 20110219
  Serious: No
  Sender: FDA-Public Use
  Company Number: US-PFIZER INC-2007030926

PATIENT
  Sex: Female
  Weight: 63.5 kg

DRUGS (4)
  1. CHANTIX [Suspect]
     Indication: SMOKING CESSATION THERAPY
     Dates: start: 20070201
  2. ACIPHEX [Concomitant]
     Indication: GASTROOESOPHAGEAL REFLUX DISEASE
  3. CRESTOR [Concomitant]
     Indication: BLOOD CHOLESTEROL INCREASED
     Dates: start: 20070201
  4. VAGIFEM [Concomitant]
     Indication: VULVOVAGINAL DRYNESS
     Dates: start: 20070101

REACTIONS (5)
  - DYSPHAGIA [None]
  - NAUSEA [None]
  - ODYNOPHAGIA [None]
  - POSTMENOPAUSAL HAEMORRHAGE [None]
  - VULVOVAGINAL DRYNESS [None]
